FAERS Safety Report 11875580 (Version 4)
Quarter: 2016Q4

REPORT INFORMATION
  Report Type: Spontaneous
  Country: JP (occurrence: JP)
  Receive Date: 20151229
  Receipt Date: 20161213
  Transmission Date: 20170206
  Serious: Yes (Death)
  Sender: FDA-Public Use
  Company Number: JP-TEVA-576988ISR

PATIENT
  Age: 15 Year
  Sex: Female
  Weight: 40 kg

DRUGS (24)
  1. OPSO [Concomitant]
     Active Substance: MORPHINE HYDROCHLORIDE
     Indication: BREAKTHROUGH PAIN
     Route: 048
     Dates: start: 20150126, end: 20150126
  2. WARFARIN [Concomitant]
     Active Substance: WARFARIN
     Indication: DEEP VEIN THROMBOSIS
     Dosage: 1.5 MILLIGRAM DAILY;
     Route: 048
     Dates: end: 20150126
  3. ADONA [Concomitant]
     Active Substance: CARBAZOCHROME SODIUM SULFONATE
     Indication: HAEMOPTYSIS
     Dosage: 60 MILLIGRAM DAILY;
     Route: 048
     Dates: end: 20150126
  4. MUCODYNE [Concomitant]
     Active Substance: CARBOCYSTEINE
     Indication: GASTRITIS PROPHYLAXIS
     Dosage: 750 MILLIGRAM DAILY;
     Route: 048
     Dates: end: 20150126
  5. MAGNESIUM OXIDE. [Concomitant]
     Active Substance: MAGNESIUM OXIDE
     Indication: CONSTIPATION
     Dosage: 990 MILLIGRAM DAILY;
     Route: 048
     Dates: end: 20150126
  6. KETALAR [Concomitant]
     Active Substance: KETAMINE HYDROCHLORIDE
     Indication: CANCER PAIN
     Dosage: 200 MILLIGRAM DAILY;
     Route: 042
     Dates: start: 20150125, end: 20150205
  7. MIDAZOLAM [Concomitant]
     Active Substance: MIDAZOLAM\MIDAZOLAM HYDROCHLORIDE
     Indication: CANCER PAIN
     Route: 042
     Dates: start: 20150125, end: 20150125
  8. OXIFAST [Concomitant]
     Active Substance: OXYCODONE
     Route: 041
     Dates: start: 20150128, end: 20150205
  9. NEXIUM [Concomitant]
     Active Substance: ESOMEPRAZOLE MAGNESIUM
     Indication: GASTRITIS PROPHYLAXIS
     Dosage: 20 MILLIGRAM DAILY;
     Route: 048
     Dates: end: 20150126
  10. OXIFAST [Concomitant]
     Active Substance: OXYCODONE
     Indication: BREAKTHROUGH PAIN
     Route: 042
     Dates: start: 20150128, end: 20150128
  11. MIDAZOLAM [Concomitant]
     Active Substance: MIDAZOLAM\MIDAZOLAM HYDROCHLORIDE
     Route: 042
     Dates: start: 20150128, end: 20150128
  12. E-FEN BUCCAL [Suspect]
     Active Substance: FENTANYL CITRATE
     Dosage: DAILY: 0MICROG-600MICROG
     Route: 002
     Dates: start: 20150124, end: 20150128
  13. FENTOS [Concomitant]
     Active Substance: FENTANYL
     Indication: CANCER PAIN
     Dosage: 7 MILLIGRAM DAILY;
     Route: 062
     Dates: end: 20150126
  14. OPSO [Concomitant]
     Active Substance: MORPHINE HYDROCHLORIDE
     Indication: CANCER PAIN
     Route: 048
     Dates: start: 20150125, end: 20150125
  15. OPSO [Concomitant]
     Active Substance: MORPHINE HYDROCHLORIDE
     Route: 048
     Dates: start: 20150127, end: 20150127
  16. OXIFAST [Concomitant]
     Active Substance: OXYCODONE
     Indication: CANCER PAIN
     Route: 042
     Dates: start: 20150128, end: 20150128
  17. MIDAZOLAM [Concomitant]
     Active Substance: MIDAZOLAM\MIDAZOLAM HYDROCHLORIDE
     Route: 042
     Dates: start: 20150126, end: 20150126
  18. E-FEN BUCCAL [Suspect]
     Active Substance: FENTANYL CITRATE
     Indication: BREAKTHROUGH PAIN
     Dosage: 300 MICROGRAM DAILY;
     Route: 002
     Dates: start: 20150124, end: 20150124
  19. LYRICA [Concomitant]
     Active Substance: PREGABALIN
     Indication: CANCER PAIN
     Route: 048
     Dates: end: 20150126
  20. KETALAR [Concomitant]
     Active Substance: KETAMINE HYDROCHLORIDE
     Route: 042
     Dates: start: 20150125
  21. TRAMCET [Concomitant]
     Active Substance: ACETAMINOPHEN\TRAMADOL
     Indication: CANCER PAIN
     Route: 048
     Dates: end: 20150126
  22. MIDAZOLAM [Concomitant]
     Active Substance: MIDAZOLAM\MIDAZOLAM HYDROCHLORIDE
     Route: 042
     Dates: start: 20150127, end: 20150127
  23. ROSEOL [Concomitant]
     Active Substance: LOXOPROFEN SODIUM
     Indication: CANCER PAIN
     Route: 048
     Dates: end: 20150126
  24. FENTOS [Concomitant]
     Active Substance: FENTANYL
     Dosage: 8 MILLIGRAM DAILY;
     Route: 062
     Dates: start: 20150127, end: 20150128

REACTIONS (3)
  - Drug ineffective [Unknown]
  - Osteosarcoma [Fatal]
  - Pyrexia [Not Recovered/Not Resolved]

NARRATIVE: CASE EVENT DATE: 20150126
